FAERS Safety Report 17713971 (Version 1)
Quarter: 2020Q2

REPORT INFORMATION
  Report Type: Spontaneous
  Country: US (occurrence: US)
  Receive Date: 20200427
  Receipt Date: 20200427
  Transmission Date: 20200714
  Serious: No
  Sender: FDA-Public Use
  Company Number: US-ROCHE-2553793

PATIENT
  Age: 41 Year
  Sex: Male

DRUGS (1)
  1. XOFLUZA [Suspect]
     Active Substance: BALOXAVIR MARBOXIL
     Indication: INFLUENZA
     Route: 048
     Dates: start: 20200211, end: 20200211

REACTIONS (5)
  - Headache [Not Recovered/Not Resolved]
  - Feeding disorder [Unknown]
  - Swollen tongue [Not Recovered/Not Resolved]
  - Dysarthria [Unknown]
  - Choking [Unknown]

NARRATIVE: CASE EVENT DATE: 20200215
